FAERS Safety Report 16661266 (Version 1)
Quarter: 2019Q3

REPORT INFORMATION
  Report Type: Spontaneous
  Country: US (occurrence: US)
  Receive Date: 20190619
  Receipt Date: 20190619
  Transmission Date: 20191004
  Serious: No
  Sender: FDA-Public Use
  Company Number: None

PATIENT
  Sex: Male

DRUGS (6)
  1. ASPIRIN TAB [Concomitant]
  2. BUSPIRONE TAB [Concomitant]
  3. CALCIUM [Concomitant]
     Active Substance: CALCIUM
  4. ESBRIET [Suspect]
     Active Substance: PIRFENIDONE
     Indication: IDIOPATHIC PULMONARY FIBROSIS
     Route: 048
     Dates: start: 20190130
  5. ESCITALOPR [Concomitant]
  6. CHLORHEC GLU SCL [Concomitant]

REACTIONS (1)
  - Catheterisation cardiac [None]
